FAERS Safety Report 5153613-6 (Version None)
Quarter: 2006Q4

REPORT INFORMATION
  Report Type: 
  Country: None (occurrence: None)
  Receive Date: 20061113
  Receipt Date: 20061026
  Transmission Date: 20070319
  Serious: Yes (Other)
  Sender: FDA-Public Use
  Company Number: 2006RR-04258

PATIENT
  Age: 64 Year
  Sex: Female
  Weight: 56 kg

DRUGS (32)
  1. AMOXICILLIN [Suspect]
     Indication: LOWER RESPIRATORY TRACT INFECTION
     Dosage: 500 MG, QD, ORAL
     Route: 048
     Dates: start: 20060531, end: 20060714
  2. AMYTRIPTYLINE [Concomitant]
  3. AMICA [Concomitant]
  4. CARBIMAZOLE [Concomitant]
  5. CIPROFLOXACIN [Concomitant]
  6. CITALOPRAM HYDROBROMIDE [Concomitant]
  7. CLARITHROMYCIN [Concomitant]
  8. CLOTRIMAZOLE [Concomitant]
  9. EUPHRASIA [Concomitant]
  10. FEXOFENADINE [Concomitant]
  11. FLUCONAZOLE [Concomitant]
  12. FLUTICASONE PROPIONATE [Concomitant]
  13. FUROSEMIDE [Concomitant]
  14. LISINOPRIL [Concomitant]
  15. MORPHINE [Concomitant]
  16. MUCODYNE [Concomitant]
  17. NEDOCROMIL SODIUM [Concomitant]
  18. NUELIN SA [Concomitant]
  19. NYSTATIN [Concomitant]
  20. OXYGEN [Concomitant]
  21. ACETAMINOPHEN [Concomitant]
  22. PREDNISOLONE [Concomitant]
  23. PROCHORPERAZINE MALEATE [Concomitant]
  24. RISEDRONATE SODIUM [Concomitant]
  25. SALBUTAMOL (SALBUTAMOL) [Concomitant]
  26. SERETIDE [Concomitant]
  27. TIOTROPIUM DPI (TIOTROPIUM) [Concomitant]
  28. ALITIZIDE-SPIRONOLACTONE (SPIRONOLACTONE, ALTIZIDE) [Concomitant]
  29. TRAMADOL HCL [Concomitant]
  30. CODEINE PHOSPHATE (CODEINE PHOSPHATE) [Concomitant]
  31. VENTOLIN [Concomitant]
  32. XYLOMETAZOLINE [Concomitant]

REACTIONS (1)
  - HEPATITIS [None]
